FAERS Safety Report 8922136 (Version 1)
Quarter: 2012Q4

REPORT INFORMATION
  Report Type: 
  Country: IT (occurrence: IT)
  Receive Date: 20121123
  Receipt Date: 20121123
  Transmission Date: 20130627
  Serious: Yes (Hospitalization, Other)
  Sender: FDA-Public Use
  Company Number: PHHY2012IT106391

PATIENT
  Age: 75 Year
  Sex: Female

DRUGS (12)
  1. TEGRETOL [Suspect]
     Indication: EPILEPSY
     Dosage: 200 mg, daily
     Route: 048
     Dates: start: 20120903, end: 20120921
  2. TEGRETOL [Suspect]
     Dosage: 100 mg, daily
     Route: 048
     Dates: start: 20120921, end: 20120928
  3. OLMESARTAN [Concomitant]
     Dosage: UNK UKN, UNK
  4. ESCITALOPRAM [Concomitant]
     Dosage: UNK UKN, UNK
     Route: 048
  5. DIAZEPAM [Concomitant]
     Dosage: UNK UKN, UNK
  6. AMLODIPINE [Concomitant]
     Dosage: UNK UKN, UNK
     Route: 048
  7. CARVIPRESS [Concomitant]
     Dosage: 12.5 mg, UNK
     Route: 048
  8. KEPPRA [Concomitant]
     Dosage: 1000 mg, BID
     Dates: start: 20061020, end: 20120903
  9. GARDENALE [Concomitant]
     Dosage: 100 mg, UNK
     Route: 048
  10. RIVOTRIL [Concomitant]
     Dosage: 5 drp, UNK
  11. SAMYR (ADEMETIONINE) [Concomitant]
     Dosage: 200 mg, UNK
     Route: 048
  12. EPARGRISEOVIT [Concomitant]
     Dosage: UNK UKN, UNK

REACTIONS (7)
  - Hyponatraemia [Recovering/Resolving]
  - Respiratory alkalosis [Unknown]
  - Hypoxia [Unknown]
  - Hypertensive heart disease [Unknown]
  - Dyspnoea [Unknown]
  - Fibrin D dimer increased [Recovering/Resolving]
  - Anxiety [Unknown]
